FAERS Safety Report 9314233 (Version 1)
Quarter: 2013Q2

REPORT INFORMATION
  Report Type: Spontaneous
  Country: US (occurrence: None)
  Receive Date: 20130524
  Receipt Date: 20130524
  Transmission Date: 20140414
  Serious: Yes (Hospitalization)
  Sender: FDA-Public Use
  Company Number: None

PATIENT
  Age: 59 Year
  Sex: Male
  Weight: 102 kg

DRUGS (2)
  1. ADVATE [Suspect]
     Indication: FACTOR VIII DEFICIENCY
     Dosage: PRE-PROCEDURE
     Route: 040
     Dates: start: 20130326, end: 20130326
  2. ADVATE [Suspect]
     Indication: CATHETERISATION CARDIAC
     Dosage: PRE-PROCEDURE
     Route: 040
     Dates: start: 20130326, end: 20130326

REACTIONS (2)
  - Factor VIII inhibition [None]
  - Coagulation factor VIII level decreased [None]
